FAERS Safety Report 7755467-8 (Version None)
Quarter: 2011Q3

REPORT INFORMATION
  Report Type: 
  Country: None (occurrence: None)
  Receive Date: 20110916
  Receipt Date: 20110912
  Transmission Date: 20111222
  Serious: Yes (Hospitalization)
  Sender: FDA-Public Use
  Company Number: JP-PFIZER INC-2011154978

PATIENT
  Age: 72 Year
  Sex: Male
  Weight: 60 kg

DRUGS (10)
  1. ADJUST-A [Concomitant]
     Dosage: 40 MG, 2X/DAY
     Route: 048
  2. TEMSIROLIMUS [Suspect]
     Indication: RENAL CELL CARCINOMA
     Dosage: 25 MG, UNK
     Dates: start: 20101130, end: 20110106
  3. POLARAMINE [Concomitant]
     Dosage: 5 MG, 1X/DAY
     Route: 042
  4. FAMOTIDINE [Concomitant]
     Dosage: 20 MG, 2X/DAY
     Route: 048
  5. LAC B [Concomitant]
     Dosage: 1 G, 3X/DAY
     Route: 048
  6. LENDORMIN [Concomitant]
     Dosage: 0.25 MG, 1X/DAY
  7. LEVOTHYROXINE SODIUM [Concomitant]
     Dosage: 50 MG, 1X/DAY
     Route: 048
  8. OXYCONTIN [Concomitant]
     Dosage: 5 MG, 1X/DAY
     Route: 048
  9. BETAMETHASONE [Concomitant]
     Dosage: 0.5 MG, 1X/DAY
  10. MAGMITT [Concomitant]
     Dosage: 330 MG, 3X/DAY
     Route: 048

REACTIONS (1)
  - HYPOTHYROIDISM [None]
